FAERS Safety Report 5865424-4 (Version None)
Quarter: 2008Q3

REPORT INFORMATION
  Report Type: 
  Country: None (occurrence: None)
  Receive Date: 20080829
  Receipt Date: 20080806
  Transmission Date: 20090109
  Serious: No
  Sender: FDA-Public Use
  Company Number: US-ABBOTT-08P-163-0469088-00

PATIENT
  Sex: Female
  Weight: 128.03 kg

DRUGS (12)
  1. SIMCOR [Suspect]
     Indication: BLOOD CHOLESTEROL INCREASED
     Route: 048
     Dates: start: 20080601
  2. FUROSEMIDE [Concomitant]
     Indication: FLUID RETENTION
     Route: 048
  3. TOPIRAMATE [Concomitant]
     Indication: BIPOLAR DISORDER
     Route: 048
  4. PANTOPRAZOLE [Concomitant]
     Indication: GASTROOESOPHAGEAL REFLUX DISEASE
     Route: 048
  5. FOLIC ACID [Concomitant]
     Indication: DRUG USE FOR UNKNOWN INDICATION
     Route: 048
  6. QUETIAPINE [Concomitant]
     Indication: BIPOLAR DISORDER
     Route: 048
  7. POTASSIUM CHLORIDE [Concomitant]
     Indication: ELECTROLYTE SUBSTITUTION THERAPY
     Route: 048
  8. METHOTREXATE SODIUM [Concomitant]
     Indication: RHEUMATOID ARTHRITIS
     Route: 048
  9. PREGABALIN [Concomitant]
     Indication: PAIN
  10. METAXALONE [Concomitant]
     Indication: MUSCLE RELAXANT THERAPY
  11. OXAPROZIN [Concomitant]
     Indication: INTERVERTEBRAL DISC PROTRUSION
  12. ACETYLSALICYLIC ACID SRT [Concomitant]
     Indication: DRUG USE FOR UNKNOWN INDICATION
     Route: 048

REACTIONS (2)
  - CONSTIPATION [None]
  - PRURITUS [None]
